FAERS Safety Report 6401603-5 (Version None)
Quarter: 2009Q4

REPORT INFORMATION
  Report Type: 
  Country: None (occurrence: None)
  Receive Date: 20091015
  Receipt Date: 20091008
  Transmission Date: 20100525
  Serious: Yes (Hospitalization)
  Sender: FDA-Public Use
  Company Number: US-JNJFOC-20091003795

PATIENT
  Sex: Male
  Weight: 117.94 kg

DRUGS (5)
  1. DURAGESIC-100 [Suspect]
     Indication: BACK PAIN
     Route: 062
     Dates: end: 20090901
  2. DURAGESIC-100 [Suspect]
     Route: 062
     Dates: start: 20090901
  3. DILAUDID [Concomitant]
     Indication: BACK PAIN
     Route: 048
  4. ZANAFLEX [Concomitant]
     Indication: MUSCLE RELAXANT THERAPY
     Route: 048
  5. DIAZEPAM [Concomitant]
     Indication: ANXIETY
     Route: 048

REACTIONS (7)
  - DRUG ADMINISTERED AT INAPPROPRIATE SITE [None]
  - FEELING ABNORMAL [None]
  - HEADACHE [None]
  - INAPPROPRIATE SCHEDULE OF DRUG ADMINISTRATION [None]
  - INTERVERTEBRAL DISC DISORDER [None]
  - PRODUCT QUALITY ISSUE [None]
  - WRONG TECHNIQUE IN DRUG USAGE PROCESS [None]
